FAERS Safety Report 21924638 (Version 1)
Quarter: 2023Q1

REPORT INFORMATION
  Report Type: Spontaneous
  Country: US (occurrence: US)
  Receive Date: 20230130
  Receipt Date: 20230130
  Transmission Date: 20230418
  Serious: Yes (Hospitalization, Other)
  Sender: FDA-Public Use
  Company Number: US-INGENUS PHARMACEUTICALS, LLC-2023INF000002

PATIENT
  Age: 68 Year
  Sex: Female

DRUGS (2)
  1. CYCLOPHOSPHAMIDE [Suspect]
     Active Substance: CYCLOPHOSPHAMIDE
     Indication: Invasive ductal breast carcinoma
     Dosage: CUMULATIVE DOSE WAS 4720 MILLIGRAM/SQ. METER
     Route: 065
  2. DOXORUBICIN [Suspect]
     Active Substance: DOXORUBICIN
     Indication: Invasive ductal breast carcinoma
     Dosage: CUMULATIVE DOSE WAS 472 MILLIGRAM/SQ. METER
     Route: 065

REACTIONS (3)
  - Device electrical impedance issue [Recovered/Resolved]
  - Device pacing issue [Recovered/Resolved]
  - Syncope [Recovered/Resolved]
